FAERS Safety Report 7387268-7 (Version None)
Quarter: 2011Q1

REPORT INFORMATION
  Report Type: 
  Country: None (occurrence: None)
  Receive Date: 20110331
  Receipt Date: 20110325
  Transmission Date: 20110831
  Serious: Yes (Other)
  Sender: FDA-Public Use
  Company Number: JP-PFIZER INC-2011066222

PATIENT
  Age: 55 Year
  Sex: Female

DRUGS (19)
  1. LYRICA [Suspect]
     Indication: NEURALGIA
     Dosage: 75 MG, 2X/DAY
     Route: 048
     Dates: start: 20110124
  2. TRANILAST [Suspect]
     Indication: SEASONAL ALLERGY
     Dosage: UNK
     Route: 047
     Dates: start: 20110309
  3. ODOMEL [Suspect]
     Indication: SEASONAL ALLERGY
     Dosage: UNK
     Route: 047
     Dates: start: 20110309
  4. RIVOTRIL [Concomitant]
     Dosage: UNK
     Route: 048
  5. DEPAS [Concomitant]
     Dosage: UNK
     Route: 048
  6. MERISLON [Concomitant]
     Dosage: UNK
     Route: 048
  7. NEUROTROPIN [Concomitant]
     Dosage: UNK
  8. SALAZOSULFAPYRIDINE [Concomitant]
     Dosage: UNK
     Route: 048
  9. NU LOTAN [Concomitant]
     Indication: HYPERTENSION
     Dosage: 25 MG, A DAY
     Route: 048
  10. METHYCOBAL [Concomitant]
     Dosage: 1500 UG, A DAY
     Route: 048
     Dates: start: 20110309
  11. LIPITOR [Concomitant]
     Dosage: UNK
     Route: 048
  12. CINAL [Concomitant]
     Dosage: UNK
     Route: 048
  13. BIOTIN [Concomitant]
     Dosage: 2 G, A DAY
     Route: 048
  14. CELESTAMINE TAB [Concomitant]
     Dosage: UNK
     Route: 048
  15. TRYPTANOL [Concomitant]
     Dosage: UNK
     Route: 048
  16. OPALMON [Concomitant]
     Dosage: UNK
     Route: 048
  17. MILNACIPRAN HYDROCHLORIDE [Concomitant]
     Dosage: UNK
     Route: 048
  18. CYMBALTA [Concomitant]
     Dosage: UNK
     Route: 048
  19. MEILAX [Concomitant]
     Dosage: UNK
     Route: 048

REACTIONS (1)
  - CORNEAL DISORDER [None]
